FAERS Safety Report 8372584-2 (Version None)
Quarter: 2012Q2

REPORT INFORMATION
  Report Type: 
  Country: None (occurrence: None)
  Receive Date: 20120521
  Receipt Date: 20120516
  Transmission Date: 20120825
  Serious: Yes (Other)
  Sender: FDA-Public Use
  Company Number: PHHY2012JP029017

PATIENT
  Sex: Female

DRUGS (6)
  1. TEGRETOL [Suspect]
     Indication: EPILEPSY
     Dosage: UNK
     Route: 048
     Dates: end: 20120402
  2. ZONISAMIDE [Concomitant]
     Route: 048
  3. LAXOBERON [Concomitant]
     Route: 048
  4. LIPITOR [Concomitant]
     Route: 048
  5. GABAPENTIN [Concomitant]
     Route: 048
  6. CLONAZEPAM [Concomitant]
     Route: 048

REACTIONS (1)
  - DIABETES INSIPIDUS [None]
